FAERS Safety Report 18642745 (Version 1)
Quarter: 2020Q4

REPORT INFORMATION
  Report Type: Report from Study
  Country: FR (occurrence: FR)
  Receive Date: 20201221
  Receipt Date: 20201221
  Transmission Date: 20210114
  Serious: Yes (Hospitalization, Other)
  Sender: FDA-Public Use
  Company Number: FR-AMGEN-FRACT2020188423

PATIENT
  Age: 67 Year
  Sex: Female
  Weight: 46 kg

DRUGS (36)
  1. BLINATUMOMAB [Suspect]
     Active Substance: BLINATUMOMAB
     Dosage: 9 MICROGRAM, QD (FROM W10 D15 TO W15 D56)
     Route: 041
     Dates: start: 20200817, end: 20200831
  2. RITUXIMAB. [Concomitant]
     Active Substance: RITUXIMAB
     Dosage: 595 MILLIGRAM, QD
     Route: 042
     Dates: start: 20200629, end: 20200629
  3. CYCLOPHOSPHAMIDE. [Concomitant]
     Active Substance: CYCLOPHOSPHAMIDE
     Indication: RICHTER^S SYNDROME
     Dosage: 1195 MILLIGRAM, QD
     Route: 042
     Dates: start: 20200525, end: 20200525
  4. CYCLOPHOSPHAMIDE. [Concomitant]
     Active Substance: CYCLOPHOSPHAMIDE
     Dosage: 1195 MILLIGRAM, QD
     Route: 042
     Dates: start: 20200629, end: 20200629
  5. BROMAZEPAM [Concomitant]
     Active Substance: BROMAZEPAM
     Indication: ANXIETY
     Dosage: 1 DOSAGE FORM (6 MG), QD
  6. FUNGIZONE [Concomitant]
     Active Substance: AMPHOTERICIN B
     Dosage: 10 % (MOUTHWASH) X3, QD
  7. DIFFU K [Concomitant]
     Active Substance: POTASSIUM CHLORIDE
     Dosage: 2400 MILLIGRAM, QD
  8. RITUXIMAB. [Concomitant]
     Active Substance: RITUXIMAB
     Indication: RICHTER^S SYNDROME
     Dosage: 597 MILLIGRAM, QD
     Route: 042
     Dates: start: 20200525, end: 20200525
  9. PREDNISONE. [Concomitant]
     Active Substance: PREDNISONE
     Dosage: UNK
     Dates: start: 20200629, end: 20200629
  10. BACTRIM [Concomitant]
     Active Substance: SULFAMETHOXAZOLE\TRIMETHOPRIM
     Dosage: 3 DOSAGE FORM, QWK
  11. VINCRISTINE [Concomitant]
     Active Substance: VINCRISTINE
     Dosage: 2 MILLIGRAM, QD
     Route: 042
     Dates: start: 20200629, end: 20200629
  12. PREDNISONE. [Concomitant]
     Active Substance: PREDNISONE
     Indication: RICHTER^S SYNDROME
     Dosage: UNK
     Dates: start: 20200525, end: 20200525
  13. SODIUM BICARBONATE. [Concomitant]
     Active Substance: SODIUM BICARBONATE
     Dosage: 1.4 PERCENT (MOUTHWASH), TID
  14. LEDERFOLINE [Concomitant]
     Active Substance: LEUCOVORIN CALCIUM
     Dosage: 25 MILLIGRAM, QWK
  15. ZARZIO [Concomitant]
     Active Substance: FILGRASTIM
     Dosage: 3 DOSAGE FORM, QWK
  16. LOVENOX [Concomitant]
     Active Substance: ENOXAPARIN SODIUM
     Dosage: 2 DOSAGE FORM (4500 IU), QD
     Dates: end: 20201008
  17. PANTOPRAZOLE [Concomitant]
     Active Substance: PANTOPRAZOLE
     Dosage: 40 MILLIGRAM, QD
  18. PHOSPHONEUROS [Concomitant]
     Active Substance: CALCIUM PHOSPHATE, DIBASIC, ANHYDROUS\MAGNESIUM GLYCEROPHOSPHATE\PHOSPHORIC ACID\SODIUM PHOSPHATE, DIBASIC
     Dosage: 200 DROP, QD
  19. VALACICLOVIR [Concomitant]
     Active Substance: VALACYCLOVIR HYDROCHLORIDE
     Dosage: 1000 MILLIGRAM, QD
  20. BLINATUMOMAB [Suspect]
     Active Substance: BLINATUMOMAB
     Indication: RICHTER^S SYNDROME
     Dosage: 9 MICROGRAM, QD (W7 D1 TO D7)
     Route: 041
     Dates: start: 20200728
  21. DOXORUBICIN [Concomitant]
     Active Substance: DOXORUBICIN
     Indication: RICHTER^S SYNDROME
     Dosage: 79.6 MILLIGRAM, QD
     Route: 042
     Dates: start: 20200525, end: 20200525
  22. VINCRISTINE [Concomitant]
     Active Substance: VINCRISTINE
     Indication: RICHTER^S SYNDROME
     Dosage: 2 MILLIGRAM, QD
     Route: 042
     Dates: start: 20200525, end: 20200525
  23. DEXAMETHASONE SODIUM PHOSPHATE. [Concomitant]
     Active Substance: DEXAMETHASONE SODIUM PHOSPHATE
     Indication: RICHTER^S SYNDROME
     Dosage: UNK
  24. PARACETAMOL [Concomitant]
     Active Substance: ACETAMINOPHEN
     Indication: PAIN
     Dosage: 3 GRAM, QD
  25. LOVENOX [Concomitant]
     Active Substance: ENOXAPARIN SODIUM
     Dosage: UNK
     Dates: start: 20201015, end: 20201024
  26. VORICONAZOLE. [Concomitant]
     Active Substance: VORICONAZOLE
     Dosage: 500 MILLIGRAM, QD
  27. BLINATUMOMAB [Suspect]
     Active Substance: BLINATUMOMAB
     Dosage: 36 MICROGRAM
     Route: 041
     Dates: start: 20200730, end: 20200803
  28. BLINATUMOMAB [Suspect]
     Active Substance: BLINATUMOMAB
     Dosage: 28 MICROGRAM, QD (W9 D8)
     Route: 041
     Dates: start: 20200804, end: 20200804
  29. BLINATUMOMAB [Suspect]
     Active Substance: BLINATUMOMAB
     Dosage: 112 MICROGRAM, QD (FROM W10 D15 TO W15 D56)
     Route: 041
     Dates: start: 20200901, end: 20201013
  30. DOXORUBICIN [Concomitant]
     Active Substance: DOXORUBICIN
     Dosage: 79 MILLIGRAM, QD
     Route: 042
     Dates: start: 20200629, end: 20200629
  31. LEVOTHYROX [Concomitant]
     Active Substance: LEVOTHYROXINE
     Dosage: 100
  32. OROZAMUDOL [Concomitant]
     Active Substance: TRAMADOL
     Indication: PAIN
     Dosage: 3 DOSAGE FORM (50 MG), QD
  33. SODIUM BICARBONATE. [Concomitant]
     Active Substance: SODIUM BICARBONATE
     Dosage: 1 DOSAGE FORM, QD
  34. BLINATUMOMAB [Suspect]
     Active Substance: BLINATUMOMAB
     Dosage: UNK (FROM W20)
     Route: 041
     Dates: start: 20201110
  35. PRIMPERAN [Concomitant]
     Active Substance: METOCLOPRAMIDE HYDROCHLORIDE
     Indication: NAUSEA
     Dosage: 30 MILLIGRAM, QD
  36. BINOCRIT [Concomitant]
     Active Substance: ERYTHROPOIETIN
     Dosage: 1 DOSAGE FORM (30000 IU), QWK
     Route: 058

REACTIONS (4)
  - Diarrhoea [Unknown]
  - Septic shock [Recovered/Resolved]
  - Pulmonary embolism [Recovered/Resolved]
  - Pyrexia [Unknown]

NARRATIVE: CASE EVENT DATE: 20200828
